FAERS Safety Report 23036639 (Version 3)
Quarter: 2024Q1

REPORT INFORMATION
  Report Type: Spontaneous
  Country: US (occurrence: US)
  Receive Date: 20231006
  Receipt Date: 20240122
  Transmission Date: 20240410
  Serious: No
  Sender: FDA-Public Use
  Company Number: US-BRISTOL-MYERS SQUIBB COMPANY-2023-141785

PATIENT
  Age: 71 Year
  Sex: Male
  Weight: 84.82 kg

DRUGS (1)
  1. POMALYST [Suspect]
     Active Substance: POMALIDOMIDE
     Indication: Primary amyloidosis
     Route: 048

REACTIONS (4)
  - Fatigue [Unknown]
  - Off label use [Unknown]
  - Glycosylated haemoglobin increased [Unknown]
  - Balance disorder [Unknown]
